FAERS Safety Report 6417036-1 (Version None)
Quarter: 2009Q4

REPORT INFORMATION
  Report Type: 
  Country: None (occurrence: None)
  Receive Date: 20091026
  Receipt Date: 20091015
  Transmission Date: 20100525
  Serious: Yes (Other)
  Sender: FDA-Public Use
  Company Number: GXKR2009JP10425

PATIENT
  Age: 55 Year
  Sex: Female
  Weight: 52 kg

DRUGS (9)
  1. ACETYLSALICYLIC ACID SRT [Suspect]
     Dosage: 200 MG, ORAL; 100 MG, MAINTENANCE DOSE FROM DAY 2,
     Route: 048
  2. WARFARIN SODIUM [Suspect]
     Indication: HEART VALVE REPLACEMENT
     Dosage: 4.5 MG DAILY, ORAL; 3.5 MG/DAY,
     Route: 048
  3. HEPARIN [Suspect]
     Indication: ARTERIOGRAM CORONARY
     Dosage: 2000 U, ONCE/SINGLE, INTRAVENOUS; 5000 U, ONCE/SINGLE, INTRAVENOUS; 10000 U/DAY CONT,
     Route: 042
  4. CLOPIDOGREL [Suspect]
     Dosage: 300 MG, ORAL; 75 MG, MAINTENANCE DOSE FROM DAY 2,
     Route: 048
  5. ISOSORBIDE DINITRATE [Concomitant]
  6. NICORANDIL (NICORANDIL) [Concomitant]
  7. CARVEDILOL [Concomitant]
  8. ENALAPRIL MALEATE [Concomitant]
  9. DOPAMINE HCL [Concomitant]

REACTIONS (5)
  - ANAEMIA [None]
  - HAEMORRHAGIC DIATHESIS [None]
  - OESOPHAGEAL HAEMORRHAGE [None]
  - PULMONARY HAEMORRHAGE [None]
  - THROMBOSIS IN DEVICE [None]
